FAERS Safety Report 6337311-9 (Version None)
Quarter: 2009Q3

REPORT INFORMATION
  Report Type: 
  Country: None (occurrence: None)
  Receive Date: 20090828
  Receipt Date: 20090828
  Transmission Date: 20100115
  Serious: Yes (Other)
  Sender: FDA-Public Use
  Company Number: None

PATIENT
  Age: 61 Year
  Sex: Female

DRUGS (14)
  1. LYRICA [Suspect]
     Indication: MULTIPLE SCLEROSIS
     Dosage: 100 MG, 3X/DAY, ORAL
     Route: 048
     Dates: start: 20080626
  2. NEURONTIN [Suspect]
     Indication: ANXIETY
     Dosage: 300 MG, 2X/DAY, ORAL
     Route: 048
     Dates: start: 20090908
  3. NEURONTIN [Suspect]
     Indication: MULTIPLE SCLEROSIS
     Dosage: 300 MG, 2X/DAY, ORAL
     Route: 048
     Dates: start: 20090908
  4. NEURONTIN [Suspect]
     Indication: NEURALGIA
     Dosage: 300 MG, 2X/DAY, ORAL
     Route: 048
     Dates: start: 20090908
  5. AMLODIPINE BESYLATE [Suspect]
     Indication: HYPERTENSION
     Dosage: 5 MG, 1X/DAY
     Dates: start: 20081101
  6. AVAPRO [Suspect]
     Indication: HYPERTENSION
     Dosage: 225 MG, 1X/DAY, ORAL
     Route: 048
     Dates: start: 20080930
  7. CELEBREX [Concomitant]
  8. NEXIUM [Concomitant]
  9. OXYCONTIN [Suspect]
     Indication: PAIN
     Dosage: 30 MG, 2X/DAY, ORAL
     Route: 048
     Dates: start: 20080908
  10. POTASSIUM CHLORIDE [Concomitant]
  11. MIRALAX [Concomitant]
  12. AMITIZA (LUBIROSTONE) [Concomitant]
  13. CYMBALTA [Concomitant]
  14. NORTRIPTYLINE HCL [Concomitant]

REACTIONS (3)
  - HYPERTENSION [None]
  - PAIN [None]
  - WEIGHT INCREASED [None]
